FAERS Safety Report 8183930-7 (Version None)
Quarter: 2012Q1

REPORT INFORMATION
  Report Type: 
  Country: None (occurrence: None)
  Receive Date: 20120305
  Receipt Date: 20120221
  Transmission Date: 20120608
  Serious: Yes (Hospitalization)
  Sender: FDA-Public Use
  Company Number: GB-FRI-1000028626

PATIENT
  Age: 52 Year
  Sex: Male

DRUGS (9)
  1. ASPIRIN [Concomitant]
  2. DILTIAZEM HCL [Suspect]
     Dosage: 3900 MG
  3. RAMIPRIL [Suspect]
     Dosage: 140 MG
  4. OMEPRAZOLE [Concomitant]
  5. ISOSORBIDE MONONITRATE [Suspect]
     Dosage: 800 MG
  6. SIMVASTATIN [Concomitant]
  7. CITALOPRAM HYDROBROMIDE [Concomitant]
  8. NICORANDIL [Suspect]
     Dosage: 120 MG
  9. TAMSULOSIN HCL [Concomitant]

REACTIONS (4)
  - MULTIPLE DRUG OVERDOSE [None]
  - ANURIA [None]
  - HYPOTENSION [None]
  - SOMNOLENCE [None]
